FAERS Safety Report 9003094 (Version 1)
Quarter: 2013Q1

REPORT INFORMATION
  Report Type: Spontaneous
  Country: US (occurrence: US)
  Receive Date: 20130108
  Receipt Date: 20130108
  Transmission Date: 20140127
  Serious: Yes (Death)
  Sender: FDA-Public Use
  Company Number: US-009507513-1301USA001835

PATIENT
  Age: 63 Year
  Sex: Male

DRUGS (3)
  1. MONTELUKAST SODIUM [Suspect]
     Indication: CHRONIC OBSTRUCTIVE PULMONARY DISEASE
     Dosage: 500 MG, QD
  2. NYSTATIN [Suspect]
     Dosage: 500;100 MCG, QD
     Route: 055
  3. HUMULIN [Suspect]
     Dosage: 100000 UNITS, QD; 10 MG, QD; 100 IU, QD

REACTIONS (1)
  - Lobar pneumonia [Fatal]
